FAERS Safety Report 25051881 (Version 1)
Quarter: 2025Q1

REPORT INFORMATION
  Report Type: Spontaneous
  Country: JP (occurrence: JP)
  Receive Date: 20250307
  Receipt Date: 20250307
  Transmission Date: 20250409
  Serious: Yes (Other)
  Sender: SANDOZ
  Company Number: JP-002147023-NVSJ2024JP008263

PATIENT
  Age: 23 Year
  Sex: Female

DRUGS (1)
  1. RITALIN [Suspect]
     Active Substance: METHYLPHENIDATE HYDROCHLORIDE
     Indication: Hypersomnia
     Route: 048

REACTIONS (4)
  - Suicidal ideation [Unknown]
  - Sensory disturbance [Unknown]
  - Off label use [Unknown]
  - Drug ineffective for unapproved indication [Unknown]
